FAERS Safety Report 7217852-2 (Version None)
Quarter: 2011Q1

REPORT INFORMATION
  Report Type: 
  Country: None (occurrence: None)
  Receive Date: 20110110
  Receipt Date: 20070122
  Transmission Date: 20110831
  Serious: Yes (Hospitalization)
  Sender: FDA-Public Use
  Company Number: PHRM2007FR00612

PATIENT
  Age: 36 Year
  Sex: Female

DRUGS (3)
  1. LODOZ [Suspect]
     Dosage: 1 DF, QD
     Route: 048
  2. COTAREG [Suspect]
     Indication: HYPERTENSION
     Dosage: 1 DF, QD
     Route: 048
  3. LEVOTHYROX [Suspect]
     Dosage: 150 UG, QD
     Route: 048

REACTIONS (2)
  - OLIGOHYDRAMNIOS [None]
  - DRUG EXPOSURE DURING PREGNANCY [None]
